FAERS Safety Report 16649581 (Version 2)
Quarter: 2019Q4

REPORT INFORMATION
  Report Type: Spontaneous
  Country: DE (occurrence: DE)
  Receive Date: 20190730
  Receipt Date: 20191023
  Transmission Date: 20200122
  Serious: Yes (Other)
  Sender: FDA-Public Use
  Company Number: PHHY2019DE174792

PATIENT
  Age: 82 Year
  Sex: Male

DRUGS (4)
  1. CANDESARTAN - 1 A PHARMA [Suspect]
     Active Substance: CANDESARTAN
     Dosage: ONE TABLET IN THE MORNING AND HALF IN THE EVENING
     Route: 065
  2. FUROSEMIDE. [Suspect]
     Active Substance: FUROSEMIDE
     Indication: PRODUCT USED FOR UNKNOWN INDICATION
     Dosage: 1 OT, QD, IN THE MORNING
     Route: 065
  3. ASPIRIN. [Suspect]
     Active Substance: ASPIRIN
     Indication: PRODUCT USED FOR UNKNOWN INDICATION
     Dosage: 1 OT, QD, IN THE MORNING
     Route: 065
  4. CANDESARTAN - 1 A PHARMA [Suspect]
     Active Substance: CANDESARTAN
     Indication: HYPERTENSION
     Dosage: UNK
     Route: 065

REACTIONS (3)
  - Marginal zone lymphoma [Unknown]
  - Blood disorder [Unknown]
  - Breast swelling [Unknown]
